FAERS Safety Report 5249895-2 (Version None)
Quarter: 2007Q1

REPORT INFORMATION
  Report Type: 
  Country: None (occurrence: None)
  Receive Date: 20070228
  Receipt Date: 20060515
  Transmission Date: 20070707
  Serious: No
  Sender: FDA-Public Use
  Company Number: US-GLAXOSMITHKLINE-A0430704A

PATIENT
  Age: 26 Year
  Sex: Female

DRUGS (4)
  1. LAMICTAL [Suspect]
     Indication: BIPOLAR DISORDER
     Dosage: 100MG PER DAY
     Route: 048
     Dates: start: 20010615
  2. SEROQUEL [Suspect]
     Indication: ANXIETY
     Dosage: 100MG PER DAY
     Route: 048
     Dates: start: 20010615
  3. EFFEXOR [Suspect]
     Indication: DEPRESSION
     Dosage: 150MG PER DAY
     Route: 048
     Dates: start: 20010615, end: 20030505
  4. BIRTH CONTROL PILLS [Suspect]
     Indication: CONTRACEPTION
     Route: 048
     Dates: start: 20050201

REACTIONS (2)
  - DRUG INTERACTION [None]
  - PREGNANCY [None]
